APPROVED DRUG PRODUCT: VALISONE
Active Ingredient: BETAMETHASONE VALERATE
Strength: EQ 0.1% BASE
Dosage Form/Route: OINTMENT;TOPICAL
Application: N016740 | Product #001
Applicant: SCHERING CORP
Approved: Approved Prior to Jan 1, 1982 | RLD: No | RS: No | Type: DISCN